FAERS Safety Report 6765958-4 (Version None)
Quarter: 2010Q2

REPORT INFORMATION
  Report Type: 
  Country: None (occurrence: None)
  Receive Date: 20100611
  Receipt Date: 20100607
  Transmission Date: 20101027
  Serious: Yes (Other)
  Sender: FDA-Public Use
  Company Number: JP-BRACCO-003584

PATIENT
  Age: 73 Year
  Sex: Male

DRUGS (3)
  1. IOPAMIDOL [Suspect]
     Indication: UROGRAM
     Route: 042
     Dates: start: 20100524, end: 20100524
  2. IOPAMIDOL [Suspect]
     Indication: BLADDER CANCER
     Route: 042
     Dates: start: 20100524, end: 20100524
  3. ANTIHYPERTENSIVES [Concomitant]
     Indication: HYPERTENSION
     Route: 065

REACTIONS (3)
  - BLOOD PRESSURE DECREASED [None]
  - DIZZINESS [None]
  - ERYTHEMA MULTIFORME [None]
